FAERS Safety Report 4777415-5 (Version None)
Quarter: 2005Q3

REPORT INFORMATION
  Report Type: 
  Country: None (occurrence: None)
  Receive Date: 20050915
  Receipt Date: 20050908
  Transmission Date: 20060218
  Serious: Yes (Hospitalization)
  Sender: FDA-Public Use
  Company Number: 2005126073

PATIENT
  Age: 67 Year
  Sex: Female
  Weight: 72.5755 kg

DRUGS (2)
  1. XANAX [Suspect]
     Indication: CHEST PAIN
     Dosage: (1 MG)
  2. ESTRACE [Concomitant]

REACTIONS (13)
  - BALANCE DISORDER [None]
  - DIZZINESS [None]
  - DYSURIA [None]
  - HEADACHE [None]
  - JOINT SWELLING [None]
  - OEDEMA PERIPHERAL [None]
  - PHARYNGEAL OEDEMA [None]
  - PHARYNGOLARYNGEAL PAIN [None]
  - ROTATOR CUFF REPAIR [None]
  - SINUS DISORDER [None]
  - SWELLING FACE [None]
  - VISION BLURRED [None]
  - WEIGHT DECREASED [None]
